FAERS Safety Report 15737595 (Version 2)
Quarter: 2019Q4

REPORT INFORMATION
  Report Type: Spontaneous
  Country: AR (occurrence: AR)
  Receive Date: 20181219
  Receipt Date: 20191008
  Transmission Date: 20200122
  Serious: Yes (Other)
  Sender: FDA-Public Use
  Company Number: AR-AMGEN-ARGSP2018180556

PATIENT
  Age: 69 Year
  Sex: Female

DRUGS (1)
  1. ENBREL [Suspect]
     Active Substance: ETANERCEPT
     Indication: RHEUMATOID ARTHRITIS
     Dosage: 50 MG, EVERY 10 DAYS
     Route: 065
     Dates: start: 20161212

REACTIONS (3)
  - Product use issue [Unknown]
  - Off label use [Unknown]
  - Deafness bilateral [Not Recovered/Not Resolved]

NARRATIVE: CASE EVENT DATE: 20161212
